FAERS Safety Report 14847706 (Version 2)
Quarter: 2019Q2

REPORT INFORMATION
  Report Type: Report from Study
  Country: FR (occurrence: FR)
  Receive Date: 20180504
  Receipt Date: 20190528
  Transmission Date: 20190711
  Serious: Yes (Other)
  Sender: FDA-Public Use
  Company Number: FR-PFIZER INC-2018174143

PATIENT
  Age: 75 Year
  Sex: Male
  Weight: 64 kg

DRUGS (5)
  1. LEVOTHYROX [Concomitant]
     Active Substance: LEVOTHYROXINE
     Dosage: 125 UG/24H, UNK
     Route: 048
     Dates: start: 20180228
  2. SUTENT [Suspect]
     Active Substance: SUNITINIB MALATE
     Indication: METASTATIC RENAL CELL CARCINOMA
     Dosage: 50 MG, FOUR WEEKS ON SIX, CYCLIC
     Route: 048
     Dates: start: 20160718
  3. COZAAR [Concomitant]
     Active Substance: LOSARTAN POTASSIUM
     Indication: HYPERTENSION
     Dosage: 50 MG/24H, UNK
     Route: 048
     Dates: start: 20160212
  4. AMLOR [Concomitant]
     Active Substance: AMLODIPINE BESYLATE
     Indication: HYPERTENSION
     Dosage: 10 MG/24H, UNK
     Route: 048
     Dates: start: 20170206
  5. LEVOTHYROX [Concomitant]
     Active Substance: LEVOTHYROXINE
     Indication: HYPOTHYROIDISM
     Dosage: 100 UG/24H, UNK
     Route: 048

REACTIONS (3)
  - Fatigue [Recovered/Resolved]
  - Cough [Recovered/Resolved]
  - Sputum abnormal [Recovered/Resolved]

NARRATIVE: CASE EVENT DATE: 20180212
